FAERS Safety Report 9106726 (Version 1)
Quarter: 2013Q1

REPORT INFORMATION
  Report Type: Spontaneous
  Country: US (occurrence: US)
  Receive Date: 20130221
  Receipt Date: 20130221
  Transmission Date: 20140127
  Serious: Yes (Hospitalization)
  Sender: FDA-Public Use
  Company Number: US-B.I. PHARMACEUTICALS,INC./RIDGEFIELD-2013-BI-03999BP

PATIENT
  Age: 82 Year
  Sex: Male
  Weight: 74 kg

DRUGS (4)
  1. SPIRIVA [Suspect]
     Indication: DYSPNOEA
     Dosage: 18 MCG
     Route: 055
     Dates: start: 20130103, end: 20130109
  2. SPIRIVA [Suspect]
     Dosage: 18 MCG
     Route: 055
     Dates: start: 20130208
  3. VENTOLIN HFA [Concomitant]
     Indication: DYSPNOEA
     Route: 055
     Dates: start: 20130103
  4. ADVAIR [Concomitant]
     Indication: DYSPNOEA
     Route: 055
     Dates: start: 20130103

REACTIONS (1)
  - Dyspnoea [Recovered/Resolved]
